FAERS Safety Report 10182135 (Version 1)
Quarter: 2014Q2

REPORT INFORMATION
  Report Type: Spontaneous
  Country: FR (occurrence: FR)
  Receive Date: 20140520
  Receipt Date: 20140520
  Transmission Date: 20141212
  Serious: Yes (Hospitalization)
  Sender: FDA-Public Use
  Company Number: FR-ROCHE-1399721

PATIENT
  Age: 24 Year
  Sex: Female

DRUGS (7)
  1. LEXOMIL [Suspect]
     Indication: TOXICITY TO VARIOUS AGENTS
     Route: 048
     Dates: start: 20140410, end: 20140410
  2. BROMAZEPAM [Suspect]
     Indication: TOXICITY TO VARIOUS AGENTS
     Route: 048
     Dates: start: 20140410, end: 20140410
  3. ZOLPIDEM [Suspect]
     Indication: TOXICITY TO VARIOUS AGENTS
     Route: 048
     Dates: start: 20140410, end: 20140410
  4. PROTHIADEN [Suspect]
     Indication: TOXICITY TO VARIOUS AGENTS
     Dosage: 75 MG
     Route: 048
     Dates: start: 20140410, end: 20140410
  5. ZOPICLONE [Suspect]
     Indication: TOXICITY TO VARIOUS AGENTS
     Route: 048
     Dates: start: 20140410, end: 20140410
  6. DIAZEPAM [Suspect]
     Indication: TOXICITY TO VARIOUS AGENTS
     Route: 048
     Dates: start: 20140410, end: 20140410
  7. ABILIFY [Concomitant]
     Route: 065

REACTIONS (4)
  - Altered state of consciousness [Recovered/Resolved]
  - Atrioventricular block [Not Recovered/Not Resolved]
  - Bundle branch block right [Not Recovered/Not Resolved]
  - Electrocardiogram QT prolonged [Not Recovered/Not Resolved]
